FAERS Safety Report 8980118 (Version 1)
Quarter: 2012Q4

REPORT INFORMATION
  Report Type: 
  Country: CH (occurrence: CH)
  Receive Date: 20121221
  Receipt Date: 20121221
  Transmission Date: 20130627
  Serious: Yes (Other)
  Sender: FDA-Public Use
  Company Number: CH-JNJFOC-20121206861

PATIENT
  Age: 0 Year
  Sex: Female
  Weight: 2.06 kg

DRUGS (7)
  1. REGAINE [Suspect]
     Route: 065
  2. REGAINE [Suspect]
     Indication: FOETAL EXPOSURE DURING PREGNANCY
     Route: 065
     Dates: start: 201201
  3. RIVOTRIL [Suspect]
     Indication: FOETAL EXPOSURE DURING PREGNANCY
     Route: 065
     Dates: start: 2012
  4. ANDROCUR [Suspect]
     Indication: FOETAL EXPOSURE DURING PREGNANCY
     Route: 065
     Dates: start: 201204
  5. MINERVA [Suspect]
     Indication: FOETAL EXPOSURE DURING PREGNANCY
     Route: 065
     Dates: start: 201201
  6. NORSOL [Suspect]
     Indication: FOETAL EXPOSURE DURING PREGNANCY
     Route: 065
     Dates: start: 201204, end: 201204
  7. FLUCONAZOLE [Suspect]
     Indication: FOETAL EXPOSURE DURING PREGNANCY
     Route: 065
     Dates: start: 201203, end: 201203

REACTIONS (2)
  - Premature baby [Not Recovered/Not Resolved]
  - Maternal drugs affecting foetus [None]
